FAERS Safety Report 12292847 (Version 2)
Quarter: 2018Q2

REPORT INFORMATION
  Report Type: Spontaneous
  Country: US (occurrence: US)
  Receive Date: 20160421
  Receipt Date: 20180531
  Transmission Date: 20180711
  Serious: No
  Sender: FDA-Public Use
  Company Number: US-AMGEN-USASP2016038906

PATIENT
  Age: 68 Year
  Sex: Female

DRUGS (4)
  1. REPATHA [Suspect]
     Active Substance: EVOLOCUMAB
     Indication: TYPE IIA HYPERLIPIDAEMIA
     Dosage: 140 MG, Q2WK
     Route: 065
  2. PITAVASTATIN. [Concomitant]
     Active Substance: PITAVASTATIN CALCIUM
     Dosage: 2 MG, 5 TIMES/WEEK
  3. ALIROCUMAB [Concomitant]
     Active Substance: ALIROCUMAB
     Dosage: 150 MG, Q2WK
     Route: 058
  4. ALIROCUMAB [Concomitant]
     Active Substance: ALIROCUMAB
     Dosage: 75 MG, Q2WK
     Route: 058

REACTIONS (1)
  - Drug ineffective [Unknown]
